FAERS Safety Report 6626718-8 (Version None)
Quarter: 2010Q1

REPORT INFORMATION
  Report Type: 
  Country: None (occurrence: None)
  Receive Date: 20100308
  Receipt Date: 20100224
  Transmission Date: 20100710
  Serious: Yes (Hospitalization)
  Sender: FDA-Public Use
  Company Number: 004203

PATIENT
  Sex: Male
  Weight: 109 kg

DRUGS (5)
  1. CERTOLIZUMAB PEGOL (CERTOLIZUMAB PEGOL) [Suspect]
     Indication: RHEUMATOID ARTHRITIS
     Dosage: SEE IMAGE
     Route: 058
     Dates: start: 20051013, end: 20091216
  2. CERTOLIZUMAB PEGOL (CERTOLIZUMAB PEGOL) [Suspect]
     Indication: RHEUMATOID ARTHRITIS
     Dosage: SEE IMAGE
     Route: 058
     Dates: start: 20100104
  3. METHOTREXATE [Concomitant]
  4. METHYLPREDNISOLONE [Concomitant]
  5. ACIDUM FOLICUM HAENSELER [Concomitant]

REACTIONS (6)
  - APPENDICITIS [None]
  - BLOOD URINE PRESENT [None]
  - INGUINAL HERNIA [None]
  - LEUKOCYTOSIS [None]
  - PROTEIN URINE PRESENT [None]
  - SCAR [None]
